FAERS Safety Report 5459401-5 (Version None)
Quarter: 2007Q3

REPORT INFORMATION
  Report Type: 
  Country: None (occurrence: None)
  Receive Date: 20070919
  Receipt Date: 20070913
  Transmission Date: 20080115
  Serious: Yes (Other)
  Sender: FDA-Public Use
  Company Number: US-JNJFOC-20070902867

PATIENT
  Sex: Male

DRUGS (2)
  1. EXTRA STRENGTH TYLENOL [Suspect]
     Route: 048
  2. EXTRA STRENGTH TYLENOL [Suspect]
     Indication: DRUG USE FOR UNKNOWN INDICATION
     Dosage: AS NECESSARY
     Route: 048

REACTIONS (3)
  - DEPENDENCE [None]
  - INCORRECT DRUG ADMINISTRATION DURATION [None]
  - TREMOR [None]
